FAERS Safety Report 6862074-8 (Version None)
Quarter: 2010Q3

REPORT INFORMATION
  Report Type: 
  Country: None (occurrence: None)
  Receive Date: 20100721
  Receipt Date: 20100713
  Transmission Date: 20110219
  Serious: Yes (Congenital Anomaly, Other)
  Sender: FDA-Public Use
  Company Number: CH-ASTRAZENECA-2010SE32513

PATIENT
  Age: 0 Year
  Sex: Female
  Weight: 3.3 kg

DRUGS (2)
  1. SEROQUEL [Suspect]
     Route: 064
     Dates: start: 20090101
  2. ZOLOFT [Suspect]
     Route: 064

REACTIONS (1)
  - DYSMORPHISM [None]
